FAERS Safety Report 9088492 (Version 1)
Quarter: 2013Q1

REPORT INFORMATION
  Report Type: Report from Study
  Country: US (occurrence: US)
  Receive Date: 20130218
  Receipt Date: 20130218
  Transmission Date: 20140127
  Serious: No
  Sender: FDA-Public Use
  Company Number: US-ABBOTT-12P-163-0917149-00

PATIENT
  Sex: Female
  Weight: 81.72 kg

DRUGS (3)
  1. SIMCOR 500MG/40MG [Suspect]
     Indication: BLOOD CHOLESTEROL INCREASED
     Dates: start: 201202
  2. MAXIDE [Concomitant]
     Indication: PRODUCT USED FOR UNKNOWN INDICATION
  3. LEVOXYL [Concomitant]
     Indication: PRODUCT USED FOR UNKNOWN INDICATION

REACTIONS (3)
  - Flushing [Recovered/Resolved]
  - Hot flush [Recovered/Resolved]
  - Pruritus [Recovered/Resolved]
